FAERS Safety Report 8875408 (Version 1)
Quarter: 2012Q4

REPORT INFORMATION
  Report Type: Report from Study
  Country: US (occurrence: US)
  Receive Date: 20121023
  Receipt Date: 20121023
  Transmission Date: 20130627
  Serious: No
  Sender: FDA-Public Use
  Company Number: US-VERTEX PHARMACEUTICAL INC.-2012-023105

PATIENT
  Age: 58 Year
  Sex: Male

DRUGS (4)
  1. VX-950 [Suspect]
     Indication: HEPATITIS C
     Dosage: 750 mg, tid
     Route: 048
  2. PEGASYS [Concomitant]
     Indication: HEPATITIS C
  3. RIBASPHERE [Concomitant]
     Indication: HEPATITIS C
     Dosage: 200 mg, UNK
  4. PROZAC [Concomitant]
     Dosage: 10 mg, UNK

REACTIONS (2)
  - Rash [Unknown]
  - Anal pruritus [Unknown]
